FAERS Safety Report 15714657 (Version 1)
Quarter: 2018Q4

REPORT INFORMATION
  Report Type: Report from Study
  Country: None (occurrence: US)
  Receive Date: 20181212
  Receipt Date: 20181212
  Transmission Date: 20190205
  Serious: Yes (Hospitalization, Other)
  Sender: FDA-Public Use
  Company Number: US-ABBVIE-18K-163-2582116-00

PATIENT
  Age: 46 Year
  Sex: Female

DRUGS (1)
  1. HUMIRA [Suspect]
     Active Substance: ADALIMUMAB
     Indication: UVEITIS
     Route: 058

REACTIONS (7)
  - Gait disturbance [Unknown]
  - Retinal artery occlusion [Unknown]
  - Cardiac operation [Unknown]
  - Diabetes mellitus [Unknown]
  - Viral upper respiratory tract infection [Unknown]
  - Pulmonary sarcoidosis [Unknown]
  - Cardiac operation [Unknown]

NARRATIVE: CASE EVENT DATE: 201803
